FAERS Safety Report 5743871-9 (Version None)
Quarter: 2008Q2

REPORT INFORMATION
  Report Type: 
  Country: None (occurrence: None)
  Receive Date: 20080520
  Receipt Date: 20080509
  Transmission Date: 20081010
  Serious: Yes (Other)
  Sender: FDA-Public Use
  Company Number: AT-ELI_LILLY_AND_COMPANY-AT200803003730

PATIENT
  Age: 76 Year
  Sex: Male
  Weight: 72 kg

DRUGS (8)
  1. GEMZAR [Suspect]
     Indication: NEOPLASM MALIGNANT
     Dosage: 1000 MG/M2, SINGLE APPLICATION
     Route: 065
     Dates: start: 20080129, end: 20080129
  2. PANTOPRAZOLE SODIUM [Concomitant]
     Dosage: 40 MG, DAILY (1/D)
     Route: 048
  3. ACETYLSALICYLIC ACID SRT [Concomitant]
     Dosage: 50 MG, DAILY (1/D)
     Route: 065
  4. ALPRAZOLAM [Concomitant]
     Dosage: 0.5 MG, DAILY (1/D)
     Route: 065
  5. BERODUAL [Concomitant]
     Dosage: UNK, 6 TIMES DAILY
     Route: 065
  6. BISOPROLOL FUMARATE [Concomitant]
     Dosage: 2.5 MG, DAILY (1/D)
     Route: 065
  7. METAMIZOLE [Concomitant]
     Dosage: 30 D/F, 3/D
     Route: 065
  8. ONDANSETRON [Concomitant]
     Dosage: 5 MG, BEFORE CHEMOTHERAPY
     Route: 065

REACTIONS (4)
  - ATRIAL FIBRILLATION [None]
  - BLOOD PRESSURE DECREASED [None]
  - CARDIAC DISORDER [None]
  - TACHYCARDIA [None]
